FAERS Safety Report 12842833 (Version 5)
Quarter: 2019Q4

REPORT INFORMATION
  Report Type: Spontaneous
  Country: US (occurrence: US)
  Receive Date: 20161013
  Receipt Date: 20191202
  Transmission Date: 20200122
  Serious: No
  Sender: FDA-Public Use
  Company Number: US-PFIZER INC-2016477993

PATIENT
  Age: 51 Year
  Sex: Female

DRUGS (1)
  1. XELJANZ [Suspect]
     Active Substance: TOFACITINIB CITRATE
     Dosage: 5 MG, UNK

REACTIONS (7)
  - Osteoporosis [Unknown]
  - Joint noise [Unknown]
  - Alopecia [Unknown]
  - Malaise [Unknown]
  - Condition aggravated [Unknown]
  - Asthenia [Unknown]
  - Pain [Unknown]
